FAERS Safety Report 24101044 (Version 2)
Quarter: 2024Q4

REPORT INFORMATION
  Report Type: Report from Study
  Country: IT (occurrence: IT)
  Receive Date: 20240717
  Receipt Date: 20241011
  Transmission Date: 20250114
  Serious: Yes (Other)
  Sender: ROCHE
  Company Number: IT-ROCHE-10000023492

PATIENT
  Age: 76 Year

DRUGS (1)
  1. PHESGO [Suspect]
     Active Substance: HYALURONIDASE-ZZXF\PERTUZUMAB\TRASTUZUMAB
     Indication: Breast cancer stage IV
     Dosage: MOST RECENT DOSE 21/JUN/2024, 20/SEP/2024?PERTUZUMAB:600MG TRASTUZUMAB:600MG
     Route: 058
     Dates: start: 20240222, end: 20240621

REACTIONS (3)
  - Pyrexia [Recovered/Resolved]
  - Blindness [Not Recovered/Not Resolved]
  - Vertigo [Not Recovered/Not Resolved]

NARRATIVE: CASE EVENT DATE: 20240524
